FAERS Safety Report 24530073 (Version 2)
Quarter: 2024Q4

REPORT INFORMATION
  Report Type: Spontaneous
  Country: JP (occurrence: JP)
  Receive Date: 20241021
  Receipt Date: 20241101
  Transmission Date: 20250115
  Serious: Yes (Hospitalization, Other)
  Sender: UCB
  Company Number: JP-UCBJ-CD202409811UCBPHAPROD

PATIENT
  Age: 19 Year
  Sex: Male

DRUGS (11)
  1. LEVETIRACETAM [Suspect]
     Active Substance: LEVETIRACETAM
     Indication: Severe myoclonic epilepsy of infancy
     Dosage: 2000 MILLIGRAM, ONCE DAILY (QD)
     Route: 048
  2. LEVETIRACETAM [Suspect]
     Active Substance: LEVETIRACETAM
     Indication: Off label use
     Dosage: 3000 MILLIGRAM, ONCE DAILY (QD)
     Route: 048
  3. VALPROATE SODIUM [Concomitant]
     Active Substance: VALPROATE SODIUM
     Indication: Product used for unknown indication
     Dosage: 800 MILLIGRAM, ONCE DAILY (QD)
  4. VALPROATE SODIUM [Concomitant]
     Active Substance: VALPROATE SODIUM
     Dosage: 400 MILLIGRAM, ONCE DAILY (QD)
  5. CLOBAZAM [Concomitant]
     Active Substance: CLOBAZAM
     Indication: Product used for unknown indication
     Dosage: 12 MILLIGRAM, ONCE DAILY (QD)
  6. CLOBAZAM [Concomitant]
     Active Substance: CLOBAZAM
     Dosage: 15 MILLIGRAM, ONCE DAILY (QD)
  7. STIRIPENTOL [Concomitant]
     Active Substance: STIRIPENTOL
     Indication: Product used for unknown indication
     Dosage: 500 MILLIGRAM, ONCE DAILY (QD)
  8. STIRIPENTOL [Concomitant]
     Active Substance: STIRIPENTOL
     Dosage: 1000 MILLIGRAM, ONCE DAILY (QD)
  9. STIRIPENTOL [Concomitant]
     Active Substance: STIRIPENTOL
     Dosage: 1250 MILLIGRAM, ONCE DAILY (QD)
  10. STIRIPENTOL [Concomitant]
     Active Substance: STIRIPENTOL
     Dosage: 1500 MILLIGRAM, ONCE DAILY (QD)
  11. STIRIPENTOL [Concomitant]
     Active Substance: STIRIPENTOL
     Dosage: 1750 MILLIGRAM, ONCE DAILY (QD)

REACTIONS (5)
  - Pneumonia aspiration [Recovered/Resolved]
  - Tracheostomy [Recovered/Resolved]
  - Gastrostomy [Recovered/Resolved]
  - Epilepsy [Recovered/Resolved]
  - Off label use [Unknown]
